FAERS Safety Report 22529302 (Version 5)
Quarter: 2024Q1

REPORT INFORMATION
  Report Type: Spontaneous
  Country: US (occurrence: US)
  Receive Date: 20230607
  Receipt Date: 20240213
  Transmission Date: 20240410
  Serious: Yes (Other)
  Sender: FDA-Public Use
  Company Number: US-BRISTOL-MYERS SQUIBB COMPANY-2023-080097

PATIENT
  Age: 80 Year
  Sex: Female
  Weight: 46.27 kg

DRUGS (3)
  1. REVLIMID [Suspect]
     Active Substance: LENALIDOMIDE
     Indication: Plasma cell myeloma
     Dosage: FREQ -TAKE 1 CAPSULE BY MOUTH DAILY FOR 21 DAYS
     Route: 048
     Dates: start: 20230508
  2. REVLIMID [Suspect]
     Active Substance: LENALIDOMIDE
     Dosage: EVERY OTHER DAY
     Route: 048
  3. REVLIMID [Suspect]
     Active Substance: LENALIDOMIDE
     Dosage: 3WEEKS ON/1WEEK OFF
     Route: 048

REACTIONS (9)
  - Fatigue [Unknown]
  - Haemorrhoids [Unknown]
  - Irritable bowel syndrome [Not Recovered/Not Resolved]
  - Malaise [Not Recovered/Not Resolved]
  - Decreased appetite [Recovering/Resolving]
  - Taste disorder [Unknown]
  - Neuropathy peripheral [Recovering/Resolving]
  - Dyspnoea [Recovering/Resolving]
  - Dry skin [Not Recovered/Not Resolved]
